FAERS Safety Report 8322870-7 (Version None)
Quarter: 2012Q2

REPORT INFORMATION
  Report Type: 
  Country: None (occurrence: None)
  Receive Date: 20120430
  Receipt Date: 20120423
  Transmission Date: 20120825
  Serious: Yes (Hospitalization, Other)
  Sender: FDA-Public Use
  Company Number: US-INCYTE CORPORATION-2012IN000523

PATIENT
  Sex: Female
  Weight: 56.689 kg

DRUGS (10)
  1. JAKAFI [Suspect]
     Indication: MYELOFIBROSIS
     Dosage: 15 MG, BID
     Route: 048
     Dates: start: 20120131, end: 20120330
  2. ALLOPURINOL [Concomitant]
     Dosage: 100 MG, QD
     Route: 048
  3. VITAMIN B COMPLEX CAP [Concomitant]
     Dosage: 1 CAP, QD
     Route: 048
  4. EMLA [Concomitant]
     Dosage: APPLY TO AFFECTED AREA, PRN
     Route: 061
  5. ZOLPIDEM [Concomitant]
     Indication: INSOMNIA
     Dosage: TAKE 0.5 - 1 TAB, QHS PRN
  6. VITAMIN D2 [Concomitant]
     Route: 048
  7. HYDROXYUREA [Concomitant]
     Dosage: 500 MG, BID
     Route: 048
  8. VITAMIN B-12 [Concomitant]
     Route: 048
  9. FOLIC ACID [Concomitant]
     Dosage: 1 MG, BID
     Route: 048
  10. LEVOTHYROXINE SODIUM [Concomitant]
     Dosage: 125 MCG, QD
     Route: 048

REACTIONS (2)
  - BONE MARROW TRANSPLANT [None]
  - FULL BLOOD COUNT DECREASED [None]
